FAERS Safety Report 5927125-3 (Version None)
Quarter: 2008Q4

REPORT INFORMATION
  Report Type: 
  Country: None (occurrence: None)
  Receive Date: 20081022
  Receipt Date: 20081016
  Transmission Date: 20090506
  Serious: Yes (Death, Hospitalization)
  Sender: FDA-Public Use
  Company Number: IN-PFIZER INC-2008087419

PATIENT
  Sex: Male
  Weight: 37.3 kg

DRUGS (12)
  1. IRINOTECAN HCL [Suspect]
     Indication: COLON CANCER
     Route: 042
     Dates: start: 20080122
  2. BLINDED SU11248 (SU011248) [Suspect]
     Indication: COLON CANCER
     Route: 048
     Dates: start: 20080122
  3. LEUCOVORIN CALCIUM [Suspect]
     Indication: COLON CANCER
     Dates: start: 20080122
  4. FLUOROURACIL [Suspect]
     Indication: COLON CANCER
     Dates: start: 20080122
  5. FLUOROURACIL [Suspect]
     Dates: start: 20080122
  6. DOMPERIDONE/PANTOPRAZOLE [Concomitant]
     Route: 048
     Dates: start: 20080122
  7. CYPROHEPTADINE HCL [Concomitant]
     Route: 048
     Dates: start: 20080122
  8. ONDANSETRON HYDROCHLORIDE [Concomitant]
     Route: 048
     Dates: start: 20080122, end: 20081009
  9. GRANISETRON [Concomitant]
     Dates: start: 20080122, end: 20081006
  10. DEXAMETHASONE [Concomitant]
     Route: 042
     Dates: start: 20080122, end: 20081006
  11. TRAMAZAC [Concomitant]
     Route: 048
     Dates: start: 20081007, end: 20081010
  12. LOPERAMIDE HCL [Concomitant]
     Route: 048
     Dates: start: 20081007, end: 20081008

REACTIONS (5)
  - DEHYDRATION [None]
  - DIARRHOEA [None]
  - MULTI-ORGAN FAILURE [None]
  - NEUTROPENIC SEPSIS [None]
  - VOMITING [None]
